FAERS Safety Report 25144641 (Version 2)
Quarter: 2025Q2

REPORT INFORMATION
  Report Type: Other
  Country: GB (occurrence: GB)
  Receive Date: 20250401
  Receipt Date: 20250402
  Transmission Date: 20250716
  Serious: Yes (Hospitalization, Other)
  Sender: GLENMARK
  Company Number: None

PATIENT
  Sex: Male

DRUGS (2)
  1. DAPAGLIFLOZIN [Suspect]
     Active Substance: DAPAGLIFLOZIN
     Indication: Type 2 diabetes mellitus
     Dosage: 10 MILLIGRAM, OD (10MG DAILY)
     Route: 065
  2. NICORANDIL [Suspect]
     Active Substance: NICORANDIL
     Indication: Product used for unknown indication
     Dosage: 30 MILLIGRAM, BID (30MG TWICE DAILY)
     Route: 065

REACTIONS (2)
  - Diabetic foot [Recovering/Resolving]
  - Skin ulcer [Recovering/Resolving]
